FAERS Safety Report 8195937-4 (Version None)
Quarter: 2012Q1

REPORT INFORMATION
  Report Type: 
  Country: None (occurrence: None)
  Receive Date: 20120308
  Receipt Date: 20120229
  Transmission Date: 20120608
  Serious: Yes (Hospitalization)
  Sender: FDA-Public Use
  Company Number: DE-TEVA-325251GER

PATIENT
  Sex: Female
  Weight: 86 kg

DRUGS (6)
  1. LAPATINIB [Suspect]
     Indication: BREAST CANCER
     Dosage: 750 MILLIGRAM;
     Route: 048
     Dates: start: 20120227
  2. PACLITAXEL [Suspect]
     Indication: BREAST CANCER
     Dosage: 151 MILLIGRAM;
     Route: 042
  3. NEUPOGEN [Concomitant]
     Dosage: 30000 IU (INTERNATIONAL UNIT);
     Route: 042
     Dates: start: 20120228, end: 20120303
  4. DOXORUBICIN HCL [Suspect]
     Indication: BREAST CANCER
     Dosage: 38 MILLIGRAM;
     Route: 042
     Dates: start: 20120227
  5. TRASTUZUMAB [Suspect]
     Indication: BREAST CANCER
     Dosage: 688 MILLIGRAM;
     Route: 042
     Dates: start: 20120227
  6. PANTOPRAZOLE [Concomitant]

REACTIONS (1)
  - THROMBOPHLEBITIS [None]
